FAERS Safety Report 11288873 (Version 1)
Quarter: 2015Q3

REPORT INFORMATION
  Report Type: Spontaneous
  Country: US (occurrence: US)
  Receive Date: 20150721
  Receipt Date: 20150721
  Transmission Date: 20151125
  Serious: No
  Sender: FDA-Public Use
  Company Number: US-UNITED THERAPEUTICS-UNT-2015-004504

PATIENT
  Age: 56 Year
  Sex: Female
  Weight: 59.86 kg

DRUGS (3)
  1. WARFARIN [Concomitant]
     Active Substance: WARFARIN
     Indication: PRODUCT USED FOR UNKNOWN INDICATION
  2. LETAIRIS [Concomitant]
     Active Substance: AMBRISENTAN
     Indication: PRODUCT USED FOR UNKNOWN INDICATION
  3. REMODULIN [Suspect]
     Active Substance: TREPROSTINIL
     Indication: PULMONARY HYPERTENSION
     Dosage: 0.075 ?G/KG/MIN, CONTINUING
     Route: 058
     Dates: start: 20130731

REACTIONS (7)
  - Abdominal discomfort [Unknown]
  - Decreased appetite [Unknown]
  - Headache [Unknown]
  - Fatigue [Unknown]
  - Vision blurred [Unknown]
  - Nasal congestion [Unknown]
  - Hypoacusis [Unknown]

NARRATIVE: CASE EVENT DATE: 201504
